FAERS Safety Report 6163410-0 (Version None)
Quarter: 2009Q2

REPORT INFORMATION
  Report Type: 
  Country: None (occurrence: None)
  Receive Date: 20090422
  Receipt Date: 20090416
  Transmission Date: 20091009
  Serious: Yes (Other)
  Sender: FDA-Public Use
  Company Number: PHEH2009US02657

PATIENT
  Sex: Male
  Weight: 65.3 kg

DRUGS (6)
  1. ZOMETA [Suspect]
     Indication: PROSTATE CANCER
     Dosage: 4 MG, QMO
     Route: 042
     Dates: start: 20080811
  2. ZOMETA [Suspect]
     Indication: METASTASES TO BONE
  3. TAXOTERE [Concomitant]
     Indication: PROSTATE CANCER METASTATIC
     Dosage: 125 MG EVERY 3 WEEKS X 8 DOSES
     Route: 042
     Dates: start: 20080811, end: 20090105
  4. ACTONEL [Concomitant]
     Dosage: 25 MG WEEKLY
  5. CALCIUM WITH VITAMIN D [Concomitant]
     Dosage: 600 MG, TID
     Route: 048
  6. COD-LIVER OIL [Concomitant]
     Dosage: DAILY
     Dates: end: 20081130

REACTIONS (4)
  - IMPAIRED HEALING [None]
  - OSTEONECROSIS [None]
  - TOOTH DISORDER [None]
  - TOOTH EXTRACTION [None]
